FAERS Safety Report 8326385-1 (Version None)
Quarter: 2012Q2

REPORT INFORMATION
  Report Type: 
  Country: None (occurrence: None)
  Receive Date: 20120501
  Receipt Date: 20120420
  Transmission Date: 20120825
  Serious: Yes (Death)
  Sender: FDA-Public Use
  Company Number: BR-ALEXION-A201200760

PATIENT
  Sex: Female

DRUGS (2)
  1. SOLIRIS [Suspect]
     Indication: PAROXYSMAL NOCTURNAL HAEMOGLOBINURIA
     Dosage: 900 MG, UNK
     Dates: start: 20110908, end: 20120413
  2. WARFARIN SODIUM [Concomitant]

REACTIONS (1)
  - MENINGITIS MENINGOCOCCAL [None]
